FAERS Safety Report 25859407 (Version 1)
Quarter: 2025Q3

REPORT INFORMATION
  Report Type: Spontaneous
  Country: GB (occurrence: GB)
  Receive Date: 20250929
  Receipt Date: 20250929
  Transmission Date: 20251020
  Serious: Yes (Death, Life-Threatening, Other)
  Sender: NOVO NORDISK
  Company Number: None

PATIENT
  Age: 34 Year
  Sex: Female

DRUGS (1)
  1. WEGOVY [Suspect]
     Active Substance: SEMAGLUTIDE
     Indication: Product used for unknown indication

REACTIONS (6)
  - Encephalopathy [Fatal]
  - Brain oedema [Unknown]
  - Posterior reversible encephalopathy syndrome [Unknown]
  - Drug tolerance [Unknown]
  - Muscle twitching [Unknown]
  - Vomiting [Unknown]

NARRATIVE: CASE EVENT DATE: 20250905
